FAERS Safety Report 8442561-1 (Version None)
Quarter: 2012Q2

REPORT INFORMATION
  Report Type: 
  Country: None (occurrence: None)
  Receive Date: 20120615
  Receipt Date: 20111222
  Transmission Date: 20120825
  Serious: No
  Sender: FDA-Public Use
  Company Number: US-NOVEN-11US003832

PATIENT
  Age: 10 Year
  Sex: Male
  Weight: 39.909 kg

DRUGS (3)
  1. INTUNIV [Concomitant]
     Dosage: 1 MG, UNK
     Route: 048
  2. INTUNIV [Concomitant]
     Indication: ATTENTION DEFICIT/HYPERACTIVITY DISORDER
     Dosage: 2 MG, UNK
     Route: 048
  3. DAYTRANA [Suspect]
     Indication: ATTENTION DEFICIT/HYPERACTIVITY DISORDER
     Dosage: 30 MG, QD
     Route: 062

REACTIONS (3)
  - INCREASED APPETITE [None]
  - IMPULSIVE BEHAVIOUR [None]
  - INCORRECT DRUG ADMINISTRATION DURATION [None]
